FAERS Safety Report 23619312 (Version 1)
Quarter: 2024Q1

REPORT INFORMATION
  Report Type: Spontaneous
  Country: DE (occurrence: DE)
  Receive Date: 20240311
  Receipt Date: 20240311
  Transmission Date: 20240410
  Serious: Yes (Hospitalization, Disabling, Other)
  Sender: FDA-Public Use
  Company Number: None

PATIENT
  Sex: Male
  Weight: 76.2 kg

DRUGS (5)
  1. ABIRATERONE [Suspect]
     Active Substance: ABIRATERONE
     Indication: Prostate cancer
     Dosage: 2-0-0
     Route: 048
     Dates: start: 202202, end: 20240110
  2. NEBIVOLOL [Concomitant]
     Active Substance: NEBIVOLOL
     Indication: Hypertension
     Dosage: 1-0-1
     Route: 048
  3. ROSUVASTATIN CALCIUM [Suspect]
     Active Substance: ROSUVASTATIN CALCIUM
     Indication: Coronary artery disease
     Dosage: 0-0-1
     Route: 048
     Dates: start: 2023, end: 20240104
  4. PREDNISOLONE [Concomitant]
     Active Substance: PREDNISOLONE
     Indication: Prostate cancer
     Dosage: 1-0-1
     Route: 048
  5. ASPIRIN [Concomitant]
     Active Substance: ASPIRIN
     Indication: Coronary artery disease
     Dosage: 1-0-0
     Route: 048
     Dates: start: 2023

REACTIONS (11)
  - Renal impairment [Recovering/Resolving]
  - Nausea [Recovering/Resolving]
  - Crush syndrome [Recovered/Resolved with Sequelae]
  - Myoglobinaemia [Recovering/Resolving]
  - Fall [Recovering/Resolving]
  - Personality change [Recovering/Resolving]
  - Labelled drug-drug interaction issue [Unknown]
  - Rhabdomyolysis [Recovering/Resolving]
  - Renal failure [Recovering/Resolving]
  - Dysuria [Recovering/Resolving]
  - Blood creatine phosphokinase increased [Recovering/Resolving]

NARRATIVE: CASE EVENT DATE: 20231230
